FAERS Safety Report 7021465-5 (Version None)
Quarter: 2010Q3

REPORT INFORMATION
  Report Type: 
  Country: None (occurrence: None)
  Receive Date: 20100929
  Receipt Date: 20100927
  Transmission Date: 20110219
  Serious: Yes (Other)
  Sender: FDA-Public Use
  Company Number: US-ELI_LILLY_AND_COMPANY-US200906005296

PATIENT
  Sex: Female
  Weight: 92.063 kg

DRUGS (10)
  1. BYETTA [Suspect]
     Dosage: 5 MG, DAILY (1/D)
     Dates: start: 20060320, end: 20081101
  2. LISINOPRIL [Concomitant]
     Indication: BLOOD PRESSURE
  3. HYDROCHLOROTHIAZIDE [Concomitant]
     Dosage: UNK, UNKNOWN
  4. LEVOTHYROXINE                      /00068001/ [Concomitant]
     Dosage: 112 MG, DAILY (1/D)
  5. PAROXETINE HCL [Concomitant]
  6. GLIMEPIRIDE [Concomitant]
     Dosage: 8 MG, DAILY (1/D)
  7. ACTOS [Concomitant]
     Indication: DIABETES MELLITUS
     Dosage: 45 MG, DAILY (1/D)
  8. METFORMIN [Concomitant]
     Indication: DIABETES MELLITUS
     Dosage: 1000 MG, UNK
  9. HYDROCODONE [Concomitant]
  10. LIPITOR [Concomitant]
     Dosage: 10 MG, DAILY (1/D)

REACTIONS (4)
  - CHEST PAIN [None]
  - INCORRECT DOSE ADMINISTERED [None]
  - PANCREATITIS ACUTE [None]
  - RENAL INJURY [None]
